FAERS Safety Report 20798545 (Version 2)
Quarter: 2022Q2

REPORT INFORMATION
  Report Type: Report from Study
  Country: US (occurrence: US)
  Receive Date: 20220507
  Receipt Date: 20220621
  Transmission Date: 20220721
  Serious: No
  Sender: FDA-Public Use
  Company Number: US-BRISTOL-MYERS SQUIBB COMPANY-2022-024512

PATIENT
  Age: 53 Year
  Sex: Male
  Weight: 95.9 kg

DRUGS (1)
  1. ABECMA [Suspect]
     Active Substance: IDECABTAGENE VICLEUCEL
     Indication: Plasma cell myeloma
     Dosage: DOSE : 1;  FREQ : UNKNOWN
     Route: 065
     Dates: start: 20220228

REACTIONS (6)
  - Pyrexia [Unknown]
  - Tachycardia [Unknown]
  - Fatigue [Unknown]
  - Hypotension [Unknown]
  - Alanine aminotransferase abnormal [Unknown]
  - Aspartate aminotransferase increased [Unknown]

NARRATIVE: CASE EVENT DATE: 20220301
